FAERS Safety Report 19665963 (Version 1)
Quarter: 2021Q3

REPORT INFORMATION
  Report Type: Spontaneous
  Country: CN (occurrence: CN)
  Receive Date: 20210805
  Receipt Date: 20210805
  Transmission Date: 20211014
  Serious: Yes (Other)
  Sender: FDA-Public Use
  Company Number: CN-BAXTER-2021BAX023445

PATIENT
  Age: 63 Year
  Sex: Female
  Weight: 51 kg

DRUGS (8)
  1. ENDOXAN [Suspect]
     Active Substance: CYCLOPHOSPHAMIDE
     Indication: BREAST CANCER FEMALE
     Dosage: FIRST CHEMOTHERAPY DILUTED WITH 40 ML SODIUM CHLORIDE
     Route: 041
     Dates: start: 20210722, end: 20210722
  2. ENDOXAN [Suspect]
     Active Substance: CYCLOPHOSPHAMIDE
     Dosage: DOSE RE?INTRODUCED
     Route: 041
  3. EPIRUBICIN HYDROCHLORIDE. [Suspect]
     Active Substance: EPIRUBICIN HYDROCHLORIDE
     Dosage: DOSE RE?INTRODUCED
     Route: 041
  4. SODIUM CHLORIDE. [Suspect]
     Active Substance: SODIUM CHLORIDE
     Dosage: DOSE RE?INTRODUCED WITH CYCLOPHOSPHAMIDE
     Route: 041
  5. EPIRUBICIN HYDROCHLORIDE. [Suspect]
     Active Substance: EPIRUBICIN HYDROCHLORIDE
     Indication: BREAST CANCER FEMALE
     Dosage: FIRST CHEMOTHERAPY DILUTED WITH 500 ML SODIUM CHLORIDE
     Route: 041
     Dates: start: 20210722, end: 20210722
  6. SODIUM CHLORIDE. [Suspect]
     Active Substance: SODIUM CHLORIDE
     Dosage: FIRST CHEMOTHERAPY DILUTED WITH EPIRUBICIN HYDROCHLORIDE
     Route: 041
     Dates: start: 20210722, end: 20210722
  7. SODIUM CHLORIDE. [Suspect]
     Active Substance: SODIUM CHLORIDE
     Indication: MEDICATION DILUTION
     Dosage: FIRST CHEMOTHERAPY DILUTED WITH CYCLOPHOSPHAMIDE
     Route: 041
     Dates: start: 20210722, end: 20210722
  8. SODIUM CHLORIDE. [Suspect]
     Active Substance: SODIUM CHLORIDE
     Dosage: DOSE RE?INTRODUCED WITH EPIRUBICIN HYDROCHLORIDE
     Route: 041

REACTIONS (3)
  - Abnormal faeces [Recovering/Resolving]
  - Diarrhoea [Recovering/Resolving]
  - Vomiting [Recovering/Resolving]

NARRATIVE: CASE EVENT DATE: 202107
